FAERS Safety Report 12247016 (Version 2)
Quarter: 2016Q2

REPORT INFORMATION
  Report Type: Report from Study
  Country: US (occurrence: US)
  Receive Date: 20160407
  Receipt Date: 20160506
  Transmission Date: 20160815
  Serious: Yes (Death, Hospitalization)
  Sender: FDA-Public Use
  Company Number: PHHO2016US004669

PATIENT
  Age: 68 Year
  Sex: Male
  Weight: 116.4 kg

DRUGS (6)
  1. BENDAMUSTINE [Suspect]
     Active Substance: BENDAMUSTINE
     Indication: LYMPHOMA
     Dosage: 90 MG/M2, UNK (DAYS 1 AND 2)
     Route: 042
     Dates: start: 20151012, end: 20151013
  2. ARZERRA [Suspect]
     Active Substance: OFATUMUMAB
     Dosage: 1000 MG, (CYCLE 2 DAY 1)
     Route: 042
  3. ARZERRA [Suspect]
     Active Substance: OFATUMUMAB
     Indication: LYMPHOMA
     Dosage: 300 MG, (CYCLE 1 DAY 1)
     Route: 042
     Dates: start: 20151012, end: 20151012
  4. ARZERRA [Suspect]
     Active Substance: OFATUMUMAB
     Dosage: 1000 MG, UNK (MAINTAINANCE THERAPY)
     Route: 042
  5. BORTEZOMIB [Suspect]
     Active Substance: BORTEZOMIB
     Indication: LYMPHOMA
     Dosage: 1.6 MG/M2, UNK (ON DAYS 1, 8, 15, AND 22)
     Route: 065
     Dates: start: 20151012, end: 20151102
  6. DEXAMETHASONE. [Concomitant]
     Active Substance: DEXAMETHASONE
     Indication: PRODUCT USED FOR UNKNOWN INDICATION
     Route: 065

REACTIONS (5)
  - Malignant neoplasm progression [Fatal]
  - Dehydration [Recovering/Resolving]
  - Lymphoma [Fatal]
  - Delirium [Recovering/Resolving]
  - Colitis [Recovered/Resolved]

NARRATIVE: CASE EVENT DATE: 20151026
